FAERS Safety Report 16766275 (Version 1)
Quarter: 2019Q4

REPORT INFORMATION
  Report Type: Spontaneous
  Country: US (occurrence: US)
  Receive Date: 20190830
  Receipt Date: 20190830
  Transmission Date: 20200122
  Serious: Yes (Disabling)
  Sender: FDA-Public Use
  Company Number: None

PATIENT
  Age: 43 Year
  Sex: Female
  Weight: 63 kg

DRUGS (5)
  1. LORATADINE. [Concomitant]
     Active Substance: LORATADINE
  2. MULTIVITAMIN [Concomitant]
     Active Substance: VITAMINS
  3. PAROXETINE. [Concomitant]
     Active Substance: PAROXETINE
  4. HUMIRA [Suspect]
     Active Substance: ADALIMUMAB
     Indication: CROHN^S DISEASE
     Dosage: ?          QUANTITY:1 INJECTION(S);OTHER FREQUENCY:TWICE PER MONTH;?
     Route: 058
     Dates: start: 20190714, end: 20190808
  5. LIALDA [Concomitant]
     Active Substance: MESALAMINE

REACTIONS (3)
  - Hypoaesthesia [None]
  - Neurological symptom [None]
  - Paraesthesia [None]

NARRATIVE: CASE EVENT DATE: 20190801
